FAERS Safety Report 9286349 (Version 2)
Quarter: 2013Q2

REPORT INFORMATION
  Report Type: Spontaneous
  Country: US (occurrence: US)
  Receive Date: 20130513
  Receipt Date: 20130607
  Transmission Date: 20140414
  Serious: Yes (Other)
  Sender: FDA-Public Use
  Company Number: US-ASTRAZENECA-2013SE31659

PATIENT
  Age: 49 Year
  Sex: 0

DRUGS (2)
  1. NEXIUM [Suspect]
     Route: 048
     Dates: start: 20130404
  2. ZOFRAN [Concomitant]
     Indication: NEOPLASM MALIGNANT
     Route: 048
     Dates: start: 201304

REACTIONS (2)
  - Neoplasm malignant [Unknown]
  - Drug dose omission [Unknown]
